FAERS Safety Report 16165841 (Version 1)
Quarter: 2019Q2

REPORT INFORMATION
  Report Type: Report from Study
  Country: EG (occurrence: EG)
  Receive Date: 20190406
  Receipt Date: 20190406
  Transmission Date: 20190711
  Serious: Yes (Other)
  Sender: FDA-Public Use
  Company Number: EG-ROCHE-2291429

PATIENT

DRUGS (2)
  1. RIBAVIRIN. [Suspect]
     Active Substance: RIBAVIRIN
     Indication: HEPATITIS C
     Route: 065
  2. OMBITASVIR/PARITAPREVIR/RITONAVIR [Suspect]
     Active Substance: OMBITASVIR\PARITAPREVIR\RITONAVIR
     Indication: HEPATITIS C
     Dosage: DOSE: 75/50/12.5 MG 2 TABLETS
     Route: 048

REACTIONS (19)
  - Hypertension [Unknown]
  - Urinary tract infection [Unknown]
  - Decreased appetite [Unknown]
  - Anaemia [Unknown]
  - Muscle spasms [Unknown]
  - Liver disorder [Unknown]
  - Cellulitis [Unknown]
  - Pruritus [Unknown]
  - Lower respiratory tract infection [Unknown]
  - Abdominal discomfort [Unknown]
  - Sleep disorder [Unknown]
  - Blood alkaline phosphatase increased [Unknown]
  - Hiccups [Unknown]
  - Respiratory distress [Unknown]
  - Fatigue [Unknown]
  - Headache [Unknown]
  - Dizziness [Unknown]
  - Thrombocytopenia [Unknown]
  - Vaginal haemorrhage [Unknown]
